FAERS Safety Report 5026894-7 (Version None)
Quarter: 2006Q2

REPORT INFORMATION
  Report Type: 
  Country: None (occurrence: None)
  Receive Date: 20060609
  Receipt Date: 20060525
  Transmission Date: 20061013
  Serious: Yes (Other)
  Sender: FDA-Public Use
  Company Number: SU-2006-004991

PATIENT
  Age: 52 Year
  Sex: Female

DRUGS (2)
  1. OLMESARTAN [Suspect]
     Indication: HYPERTENSION
     Dosage: 20 MG QD PO
     Route: 048
     Dates: start: 20051201, end: 20060511
  2. ALENIA [Concomitant]

REACTIONS (1)
  - BLOOD PRESSURE DECREASED [None]
